FAERS Safety Report 4637697-7 (Version None)
Quarter: 2005Q2

REPORT INFORMATION
  Report Type: 
  Country: None (occurrence: None)
  Receive Date: 20050328
  Receipt Date: 20041214
  Transmission Date: 20051028
  Serious: No
  Sender: FDA-Public Use
  Company Number: USA041286130

PATIENT
  Age: 11 Year
  Sex: Male
  Weight: 27 kg

DRUGS (1)
  1. STRATTERA [Suspect]
     Indication: ATTENTION DEFICIT/HYPERACTIVITY DISORDER
     Dosage: 18 MG IN THE MORNING
     Dates: start: 20041214

REACTIONS (3)
  - FEELING ABNORMAL [None]
  - HYPOAESTHESIA [None]
  - SOMNOLENCE [None]
